FAERS Safety Report 4576711-4 (Version None)
Quarter: 2005Q1

REPORT INFORMATION
  Report Type: 
  Country: None (occurrence: None)
  Receive Date: 20050207
  Receipt Date: 20050131
  Transmission Date: 20050727
  Serious: Yes (Congenital Anomaly)
  Sender: FDA-Public Use
  Company Number: 2004-03-0449

PATIENT
  Age: 1 Day

DRUGS (6)
  1. PEG INTRON (PEGINTERFERON ALFA 2B) INJECTABLE POWDER [Suspect]
     Indication: HEPATITIS C
     Dosage: 96 MCG QW SUBCUTANEOUS
     Route: 058
     Dates: start: 20030301, end: 20030801
  2. REBETOL [Suspect]
     Indication: HEPATITIS C
     Dosage: 800 MG QD ORAL
     Route: 048
     Dates: start: 20030301, end: 20030801
  3. VITAMIN B-12 [Concomitant]
  4. PROPYLTHIOURACIL [Concomitant]
  5. METOPROLOL [Concomitant]
  6. INSULIN [Concomitant]

REACTIONS (7)
  - BASEDOW'S DISEASE [None]
  - CARDIAC ANEURYSM [None]
  - DANDY-WALKER SYNDROME [None]
  - DRUG EXPOSURE DURING PREGNANCY [None]
  - HYPERGLYCAEMIA [None]
  - HYPERTENSION [None]
  - VENTRICULAR SEPTAL DEFECT [None]
